FAERS Safety Report 5152582-2 (Version None)
Quarter: 2006Q4

REPORT INFORMATION
  Report Type: 
  Country: None (occurrence: None)
  Receive Date: 20061109
  Receipt Date: 20031006
  Transmission Date: 20070319
  Serious: Yes (Death)
  Sender: FDA-Public Use
  Company Number: 2006120935

PATIENT
  Sex: Male

DRUGS (3)
  1. IRINOTECAN HCL [Suspect]
     Indication: COLORECTAL CANCER METASTATIC
     Dosage: (EVERY 2 WEEKS)
  2. CHOLESTYRAMINE [Suspect]
     Indication: DIARRHOEA
  3. LEVOFLOXACIN [Suspect]
     Indication: DIARRHOEA

REACTIONS (1)
  - ADVERSE DRUG REACTION [None]
